FAERS Safety Report 8620977 (Version 2)
Quarter: 2012Q4

REPORT INFORMATION
  Report Type: 
  Country: FR (occurrence: FR)
  Receive Date: 20120619
  Receipt Date: 20120927
  Transmission Date: 20130627
  Serious: Yes (Hospitalization)
  Sender: FDA-Public Use
  Company Number: FR-GE HEALTHCARE MEDICAL DIAGNOSTICS-VISP-NO-1206S-0277

PATIENT
  Age: 64 Year
  Sex: Male

DRUGS (10)
  1. VISIPAQUE [Suspect]
     Indication: PRODUCT USED FOR UNKNOWN INDICATION
     Route: 065
     Dates: start: 20120524, end: 20120524
  2. PLAVIX [Suspect]
  3. KARDEGIC [Concomitant]
  4. LERCAN [Concomitant]
  5. TAHOR [Concomitant]
  6. VALSARTAN [Concomitant]
  7. METFORMINE [Concomitant]
  8. VALIUM [Concomitant]
  9. MOPRAL [Concomitant]
  10. FLUINDIONE [Concomitant]

REACTIONS (4)
  - Anaphylactic reaction [Recovered/Resolved]
  - Vasoplegia syndrome [Recovered/Resolved]
  - Urticaria [Recovered/Resolved]
  - Feeling hot [Recovered/Resolved]
